FAERS Safety Report 6184232-0 (Version None)
Quarter: 2009Q2

REPORT INFORMATION
  Report Type: 
  Country: None (occurrence: None)
  Receive Date: 20090508
  Receipt Date: 20090423
  Transmission Date: 20091009
  Serious: Yes (Hospitalization, Other)
  Sender: FDA-Public Use
  Company Number: PHHO2008GB04149

PATIENT
  Sex: Female
  Weight: 44.4 kg

DRUGS (10)
  1. LDT600 LDT+TAB [Suspect]
     Indication: HEPATITIS B VIRUS TEST
     Dosage: 600 MG, QD
     Route: 048
     Dates: start: 20070831, end: 20071130
  2. PEGASYS [Suspect]
     Indication: HEPATITIS B VIRUS TEST
     Dosage: 180 MCG WEEKLY
     Route: 058
     Dates: start: 20070831, end: 20071130
  3. AMITRIPTLINE HYDROCHLORIDE TAB [Suspect]
  4. PREGABALIN [Concomitant]
  5. AUGMENTIN '125' [Concomitant]
  6. CHLORAMPHENICOL [Concomitant]
  7. SENNA [Concomitant]
     Dosage: UNK
  8. FYBOGEL [Concomitant]
  9. BISACODYL [Concomitant]
  10. FERROUS SULFATE TAB [Concomitant]

REACTIONS (39)
  - ANGER [None]
  - ANOREXIA [None]
  - ANXIETY [None]
  - BURNING SENSATION [None]
  - CLUMSINESS [None]
  - CRYING [None]
  - DEPRESSED MOOD [None]
  - DEPRESSION [None]
  - DISTURBANCE IN ATTENTION [None]
  - EMOTIONAL DISTRESS [None]
  - EYE PAIN [None]
  - FATIGUE [None]
  - FEELING GUILTY [None]
  - GAIT DISTURBANCE [None]
  - HYPERSOMNIA [None]
  - HYPERVIGILANCE [None]
  - HYPOAESTHESIA [None]
  - INSOMNIA [None]
  - INTENTIONAL SELF-INJURY [None]
  - IRRITABILITY [None]
  - JAUNDICE [None]
  - MEMORY IMPAIRMENT [None]
  - MOOD SWINGS [None]
  - MUSCLE SPASMS [None]
  - NEURALGIA [None]
  - NEUROPATHY PERIPHERAL [None]
  - NIGHTMARE [None]
  - PAIN [None]
  - PALLOR [None]
  - PARAESTHESIA [None]
  - SELF ESTEEM DECREASED [None]
  - SENSORY DISTURBANCE [None]
  - SENSORY LOSS [None]
  - SOCIAL AVOIDANT BEHAVIOUR [None]
  - SOMNOLENCE [None]
  - SUICIDAL IDEATION [None]
  - VIBRATION TEST ABNORMAL [None]
  - VISION BLURRED [None]
  - VISUAL ACUITY REDUCED [None]
